FAERS Safety Report 24583579 (Version 1)
Quarter: 2024Q4

REPORT INFORMATION
  Report Type: Spontaneous
  Country: EC (occurrence: EC)
  Receive Date: 20241106
  Receipt Date: 20241106
  Transmission Date: 20250115
  Serious: Yes (Other)
  Sender: ROCHE
  Company Number: EC-BoehringerIngelheim-2024-BI-059723

PATIENT
  Age: 59 Year
  Sex: Male

DRUGS (3)
  1. ALTEPLASE [Suspect]
     Active Substance: ALTEPLASE
     Indication: Acute myocardial infarction
     Route: 065
     Dates: start: 20241021
  2. CLOPIDOGREL [Concomitant]
     Active Substance: CLOPIDOGREL BISULFATE
     Indication: Acute myocardial infarction
     Dates: start: 20241021
  3. ASPIRIN [Concomitant]
     Active Substance: ASPIRIN
     Indication: Acute myocardial infarction
     Dates: start: 20241021

REACTIONS (2)
  - Treatment failure [Unknown]
  - Myocardial necrosis [Unknown]

NARRATIVE: CASE EVENT DATE: 20241021
